FAERS Safety Report 25338922 (Version 2)
Quarter: 2025Q2

REPORT INFORMATION
  Report Type: Report from Study
  Country: US (occurrence: US)
  Receive Date: 20250520
  Receipt Date: 20250616
  Transmission Date: 20250716
  Serious: Yes (Other)
  Sender: ABBVIE
  Company Number: US-ABBVIE-6068266

PATIENT
  Sex: Female

DRUGS (1)
  1. HUMIRA [Suspect]
     Active Substance: ADALIMUMAB
     Indication: Product used for unknown indication
     Route: 058
     Dates: start: 201310

REACTIONS (5)
  - Spinal disorder [Unknown]
  - Back pain [Unknown]
  - Gout [Recovered/Resolved]
  - Intervertebral disc degeneration [Recovering/Resolving]
  - Visual impairment [Unknown]
